FAERS Safety Report 15935476 (Version 1)
Quarter: 2019Q1

REPORT INFORMATION
  Report Type: Spontaneous
  Country: DE (occurrence: DE)
  Receive Date: 20190208
  Receipt Date: 20190208
  Transmission Date: 20190417
  Serious: Yes (Death, Life-Threatening, Hospitalization, Other)
  Sender: FDA-Public Use
  Company Number: DE-AUROBINDO-AUR-APL-2018-011277

PATIENT

DRUGS (60)
  1. FOLINIC ACID [Suspect]
     Active Substance: LEUCOVORIN
     Dosage: 456 MILLIGRAM
     Route: 042
     Dates: start: 20150903, end: 20151104
  2. 5-FLUOROURACIL [Suspect]
     Active Substance: FLUOROURACIL
     Dosage: 4000 MILLIGRAM
     Route: 042
     Dates: start: 20150603, end: 20150805
  3. 5-FLUOROURACIL [Suspect]
     Active Substance: FLUOROURACIL
     Dosage: 304 MILLIGRAM
     Route: 040
     Dates: start: 20151124, end: 20151124
  4. 5-FLUOROURACIL [Suspect]
     Active Substance: FLUOROURACIL
     Dosage: 468 MILLIGRAM
     Route: 040
     Dates: start: 20160126, end: 20160126
  5. AVASTIN [Suspect]
     Active Substance: BEVACIZUMAB
     Indication: COLORECTAL CANCER
     Dosage: 245 MILLIGRAM,DATE OF LAST DOSE PRIOR TO SAE: 30/JUN/20155 MG/KG
     Route: 042
     Dates: start: 20150603, end: 20151124
  6. HALOPERIDOL. [Concomitant]
     Active Substance: HALOPERIDOL
     Indication: VOMITING
     Dosage: 0.07 MILLIGRAM
     Route: 042
     Dates: start: 20150810, end: 20150826
  7. HALOPERIDOL. [Concomitant]
     Active Substance: HALOPERIDOL
     Dosage: 15 GTT DROPS
     Route: 048
     Dates: start: 20150902, end: 20151101
  8. HALOPERIDOL. [Concomitant]
     Active Substance: HALOPERIDOL
     Dosage: 0.04 MILLIGRAM
     Route: 042
     Dates: start: 20150831, end: 20150901
  9. HALOPERIDOL. [Concomitant]
     Active Substance: HALOPERIDOL
     Dosage: 0.03 MILLIGRAM
     Route: 042
     Dates: start: 20150901, end: 20150902
  10. HALOPERIDOL. [Concomitant]
     Active Substance: HALOPERIDOL
     Dosage: 5 GTT DROPS
     Route: 048
     Dates: start: 20150902, end: 201511
  11. NOVAMINSULFON [Concomitant]
     Active Substance: METAMIZOLE
     Dosage: 1000 MILLIGRAM
     Route: 042
     Dates: start: 20160225, end: 20160226
  12. NOVALGIN (METAMIZOLE SODIUM) [Concomitant]
     Active Substance: METAMIZOLE SODIUM
     Indication: BACK PAIN
     Dosage: 3 GRAM
     Route: 042
     Dates: start: 20160225, end: 20160226
  13. IRINOTECAN [Suspect]
     Active Substance: IRINOTECAN
     Indication: COLORECTAL CANCER
     Dosage: 125 MILLIGRAM
     Route: 042
     Dates: start: 20150723, end: 20150805
  14. FOLINIC ACID [Suspect]
     Active Substance: LEUCOVORIN
     Dosage: 240 MILLIGRAM
     Route: 042
     Dates: start: 20150603, end: 20150805
  15. OXALIPLATIN. [Suspect]
     Active Substance: OXALIPLATIN
     Dosage: 103.36 MILLIGRAM
     Route: 042
     Dates: start: 20150603, end: 20150805
  16. 5-FLUOROURACIL [Suspect]
     Active Substance: FLUOROURACIL
     Indication: COLORECTAL CANCER
     Dosage: 3420 MILLIGRAM
     Route: 042
     Dates: start: 20150903, end: 20151106
  17. 5-FLUOROURACIL [Suspect]
     Active Substance: FLUOROURACIL
     Dosage: 2340 MILLIGRAM
     Route: 042
     Dates: start: 20160108, end: 20160110
  18. 5-FLUOROURACIL [Suspect]
     Active Substance: FLUOROURACIL
     Dosage: 312 MILLIGRAM
     Route: 040
     Dates: start: 20160108, end: 20160112
  19. AVASTIN [Suspect]
     Active Substance: BEVACIZUMAB
     Dosage: 260 MILLIGRAM
     Route: 042
     Dates: start: 20160212, end: 20160212
  20. NOVAMINSULFON [Concomitant]
     Active Substance: METAMIZOLE
     Dosage: 5000 MILLIGRAM
     Route: 042
     Dates: start: 20160225
  21. NOVALGIN (METAMIZOLE SODIUM) [Concomitant]
     Active Substance: METAMIZOLE SODIUM
     Dosage: 1500 MILLIGRAM
     Route: 048
     Dates: start: 20150902
  22. BEPANTHENE [Concomitant]
     Active Substance: DEXPANTHENOL
     Indication: PROPHYLAXIS
  23. BEVACIZUMAB. [Suspect]
     Active Substance: BEVACIZUMAB
     Indication: COLORECTAL CANCER METASTATIC
     Dosage: 245 MILLIGRAM,2WEEK
     Route: 042
     Dates: start: 20150603, end: 20151124
  24. HALOPERIDOL. [Concomitant]
     Active Substance: HALOPERIDOL
     Dosage: 2.5 MILLIGRAM
     Route: 042
     Dates: start: 20150721, end: 20150810
  25. NOVAMINSULFON [Concomitant]
     Active Substance: METAMIZOLE
     Dosage: 5 MILLIGRAM
     Route: 065
  26. PEGFILGRASTIM [Concomitant]
     Active Substance: PEGFILGRASTIM
     Indication: PROPHYLAXIS
     Dosage: 6 MILLIGRAM,SINCE 2ND CYCLE OF THERAPY.
     Route: 058
     Dates: start: 20150620, end: 20151023
  27. OXALIPLATIN. [Suspect]
     Active Substance: OXALIPLATIN
     Dosage: 78 MILLIGRAM
     Route: 042
     Dates: start: 20160108, end: 20160212
  28. OXALIPLATIN. [Suspect]
     Active Substance: OXALIPLATIN
     Dosage: 114 MILLIGRAM
     Route: 042
     Dates: start: 20150903, end: 20151104
  29. OXALIPLATIN. [Suspect]
     Active Substance: OXALIPLATIN
     Dosage: 78 MILLIGRAM
     Route: 042
     Dates: start: 20160212, end: 20160212
  30. 5-FLUOROURACIL [Suspect]
     Active Substance: FLUOROURACIL
     Dosage: 304-312 MG (1)
     Route: 040
     Dates: start: 20151124, end: 20160212
  31. AVASTIN [Suspect]
     Active Substance: BEVACIZUMAB
     Dosage: 245 MILLIGRAM
     Route: 042
  32. MIRTAZAPIN [Concomitant]
     Active Substance: MIRTAZAPINE
     Indication: ADJUSTMENT DISORDER WITH DEPRESSED MOOD
     Dosage: 15 MILLIGRAM (0-0-1)
     Route: 048
  33. BEPANTHENE [Concomitant]
     Active Substance: DEXPANTHENOL
     Indication: MUCOSAL INFLAMMATION
     Dosage: 1-1-1 (3)
     Route: 048
  34. FOLINIC ACID [Suspect]
     Active Substance: LEUCOVORIN
     Dosage: 240-468 MG
     Route: 042
     Dates: start: 20150603, end: 20160212
  35. OXALIPLATIN. [Suspect]
     Active Substance: OXALIPLATIN
     Indication: COLORECTAL CANCER
     Dosage: 76 MILLIGRAM
     Route: 042
     Dates: start: 20151124, end: 20151124
  36. 5-FLUOROURACIL [Suspect]
     Active Substance: FLUOROURACIL
     Dosage: 3510 MILLIGRAM
     Route: 042
     Dates: start: 20160126, end: 20160127
  37. HALOPERIDOL. [Concomitant]
     Active Substance: HALOPERIDOL
     Dosage: 0.05 MILLIGRAM
     Route: 042
     Dates: start: 20150826, end: 20150831
  38. NOVAMINSULFON [Concomitant]
     Active Substance: METAMIZOLE
     Dosage: 6 MILLIGRAM
     Route: 042
     Dates: start: 20150831, end: 20150901
  39. FOLINIC ACID [Suspect]
     Active Substance: LEUCOVORIN
     Dosage: 468 MILLIGRAM
     Route: 042
     Dates: start: 20160126, end: 20160126
  40. NEXIUM [Concomitant]
     Active Substance: ESOMEPRAZOLE MAGNESIUM
     Indication: PROPHYLAXIS
     Dosage: 40 MILLIGRAM
     Route: 048
     Dates: start: 20150602, end: 20160224
  41. NOVAMINSULFON [Concomitant]
     Active Substance: METAMIZOLE
     Indication: COLORECTAL CANCER METASTATIC
     Dosage: 7.5 MILLIGRAM
     Route: 042
     Dates: start: 20150826, end: 20150831
  42. NOVAMINSULFON [Concomitant]
     Active Substance: METAMIZOLE
     Dosage: 4.5 MILLIGRAM
     Route: 042
     Dates: start: 20150901, end: 20150902
  43. KEPPRA [Concomitant]
     Active Substance: LEVETIRACETAM
     Indication: PRODUCT USED FOR UNKNOWN INDICATION
     Dosage: 1000 MILLIGRAM, ONCE A DAY
     Route: 042
     Dates: start: 20160301
  44. ZOFRAN [Concomitant]
     Active Substance: ONDANSETRON HYDROCHLORIDE
     Indication: VOMITING
     Dosage: 8 MILLIGRAM (1-0-0)
     Route: 048
     Dates: start: 20150605
  45. FOLINIC ACID [Suspect]
     Active Substance: LEUCOVORIN
     Dosage: 304 MILLIGRAM
     Route: 042
     Dates: start: 20151124, end: 20151124
  46. OXALIPLATIN. [Suspect]
     Active Substance: OXALIPLATIN
     Dosage: 117 MILLIGRAM
     Route: 042
     Dates: start: 20160126, end: 20160126
  47. 5-FLUOROURACIL [Suspect]
     Active Substance: FLUOROURACIL
     Dosage: 2280 MILLIGRAM
     Route: 042
     Dates: start: 20151124, end: 20151126
  48. BEVACIZUMAB. [Suspect]
     Active Substance: BEVACIZUMAB
     Dosage: 260 MILLIGRAM
     Route: 042
     Dates: start: 20160212, end: 20160212
  49. ONDANSETRON [Concomitant]
     Active Substance: ONDANSETRON
     Indication: NAUSEA
     Dosage: 8 MILLIGRAM
     Route: 048
     Dates: start: 20150604
  50. NEXIUM [Concomitant]
     Active Substance: ESOMEPRAZOLE MAGNESIUM
     Dosage: (1)
     Route: 042
     Dates: start: 20160225
  51. NOVALGIN (METAMIZOLE SODIUM) [Concomitant]
     Active Substance: METAMIZOLE SODIUM
     Indication: TUMOUR PAIN
     Dosage: 2000 MILLIGRAM
     Route: 048
     Dates: start: 20150602, end: 20150728
  52. EFFENTORA [Concomitant]
     Active Substance: FENTANYL CITRATE
     Indication: PAIN
     Dosage: 100 MICROGRAM
     Route: 048
     Dates: end: 20150721
  53. IRINOTECAN [Suspect]
     Active Substance: IRINOTECAN
     Dosage: 200 MILLIGRAM
     Route: 042
     Dates: start: 20150603, end: 20150630
  54. FOLINIC ACID [Suspect]
     Active Substance: LEUCOVORIN
     Indication: COLORECTAL CANCER
     Dosage: 312 MILLIGRAM
     Route: 042
     Dates: start: 20160108, end: 20160212
  55. 5-FLUOROURACIL [Suspect]
     Active Substance: FLUOROURACIL
     Dosage: 456 MILLIGRAM
     Route: 040
     Dates: start: 20150903, end: 20151104
  56. NOVAMINSULFON [Concomitant]
     Active Substance: METAMIZOLE
     Dosage: 10.5 MILLIGRAM
     Route: 042
     Dates: start: 20150810, end: 20150826
  57. NOVAMINSULFON [Concomitant]
     Active Substance: METAMIZOLE
     Dosage: 1000 MILLIGRAM
     Route: 048
     Dates: start: 20160212
  58. NOVAMINSULFON [Concomitant]
     Active Substance: METAMIZOLE
     Dosage: 1500 MILLIGRAM
     Route: 048
     Dates: start: 20150902, end: 20151103
  59. NOVALGIN (METAMIZOLE SODIUM) [Concomitant]
     Active Substance: METAMIZOLE SODIUM
     Dosage: 15000 MILLIGRAM
     Route: 042
     Dates: start: 20150721, end: 20150810
  60. MIRTAZAPIN [Concomitant]
     Active Substance: MIRTAZAPINE
     Dosage: 15 MILLIGRAM
     Route: 048
     Dates: start: 20150605, end: 20151208

REACTIONS (9)
  - Disturbance in attention [Fatal]
  - Headache [Not Recovered/Not Resolved]
  - Optic nerve disorder [Unknown]
  - Venous thrombosis limb [Recovered/Resolved]
  - Pneumonia [Recovered/Resolved]
  - Metastases to meninges [Recovering/Resolving]
  - Overdose [Unknown]
  - Neutropenia [Recovered/Resolved]
  - Pulmonary embolism [Recovered/Resolved]

NARRATIVE: CASE EVENT DATE: 20150617
